FAERS Safety Report 6021081-8 (Version None)
Quarter: 2008Q4

REPORT INFORMATION
  Report Type: 
  Country: None (occurrence: None)
  Receive Date: 20081229
  Receipt Date: 20081216
  Transmission Date: 20090506
  Serious: Yes (Other)
  Sender: FDA-Public Use
  Company Number: FR-PFIZER INC-2008156291

PATIENT

DRUGS (3)
  1. PREGABALIN [Suspect]
     Indication: SCIATICA
     Dosage: 75 MG, 2X/DAY
     Dates: start: 20070701, end: 20071101
  2. GABAPENTIN [Concomitant]
  3. RIVOTRIL [Concomitant]

REACTIONS (3)
  - BREAST CANCER FEMALE [None]
  - WEIGHT DECREASED [None]
  - WEIGHT INCREASED [None]
